FAERS Safety Report 4343139-1 (Version None)
Quarter: 2004Q2

REPORT INFORMATION
  Report Type: 
  Country: None (occurrence: None)
  Receive Date: 20040419
  Receipt Date: 20040206
  Transmission Date: 20050107
  Serious: Yes (Life-Threatening, Disabling)
  Sender: FDA-Public Use
  Company Number: A01200400617

PATIENT
  Age: 22 Year
  Sex: Female

DRUGS (3)
  1. ISCOVER- (CLOPIDOGREL SULFATE) - TABLET- 75 MG [Suspect]
     Indication: ARTERY DISSECTION
     Dosage: 75 MG QD, ORAL
     Route: 048
     Dates: start: 20031223, end: 20040111
  2. VALPROATE SODIUM [Suspect]
     Indication: BASILAR MIGRAINE
     Dosage: 600 MG QD, ORAL
     Route: 048
     Dates: start: 20030901, end: 20040112
  3. VALPROATE SODIUM [Suspect]
     Indication: PROPHYLAXIS
     Dosage: 600 MG QD, ORAL
     Route: 048
     Dates: start: 20030901, end: 20040112

REACTIONS (8)
  - EXANTHEM [None]
  - GASTROINTESTINAL HAEMORRHAGE [None]
  - GASTROINTESTINAL MUCOSAL DISORDER [None]
  - HAEMATOMA [None]
  - MELAENA [None]
  - PAIN [None]
  - RASH MACULAR [None]
  - SUBCUTANEOUS NODULE [None]
